FAERS Safety Report 18905074 (Version 1)
Quarter: 2021Q1

REPORT INFORMATION
  Report Type: Report from Study
  Country: CA (occurrence: CA)
  Receive Date: 20210217
  Receipt Date: 20210217
  Transmission Date: 20210420
  Serious: Yes (Hospitalization)
  Sender: FDA-Public Use
  Company Number: CA-JNJFOC-20200827873

PATIENT
  Age: 26 Year
  Sex: Male
  Weight: 51.85 kg

DRUGS (3)
  1. PREDNISONE. [Suspect]
     Active Substance: PREDNISONE
     Indication: CROHN^S DISEASE
     Route: 048
  2. PREDNISONE. [Suspect]
     Active Substance: PREDNISONE
     Route: 048
  3. REMICADE [Suspect]
     Active Substance: INFLIXIMAB
     Indication: CROHN^S DISEASE
     Dosage: ON 04?SEP?2020, THE PATIENT RECEIVED 2ND DOSE OF 300MG INFLIXIMAB INFUSION. ON 09?OCT?2020, THE PATI
     Route: 042
     Dates: start: 20200814

REACTIONS (8)
  - Headache [Not Recovered/Not Resolved]
  - Pulmonary tuberculosis [Recovering/Resolving]
  - Tuberculosis gastrointestinal [Recovering/Resolving]
  - Product use issue [Unknown]
  - Pyrexia [Not Recovered/Not Resolved]
  - Insomnia [Not Recovered/Not Resolved]
  - Off label use [Unknown]
  - Abdominal pain [Not Recovered/Not Resolved]

NARRATIVE: CASE EVENT DATE: 20200814
